FAERS Safety Report 10729379 (Version 1)
Quarter: 2015Q1

REPORT INFORMATION
  Report Type: Spontaneous
  Country: US (occurrence: None)
  Receive Date: 20150120
  Receipt Date: 20150120
  Transmission Date: 20150721
  Serious: Yes (Hospitalization, Other)
  Sender: FDA-Public Use
  Company Number: None

PATIENT
  Age: 21 Year
  Sex: Female
  Weight: 49.9 kg

DRUGS (1)
  1. LORAZEPAM. [Suspect]
     Active Substance: LORAZEPAM
     Indication: SEIZURE
     Dosage: 1 PILL AS NEEDED
     Dates: start: 20140730, end: 20140919

REACTIONS (4)
  - Psychogenic seizure [None]
  - Fall [None]
  - Educational problem [None]
  - Seizure [None]

NARRATIVE: CASE EVENT DATE: 20140716
